FAERS Safety Report 7741128-8 (Version None)
Quarter: 2011Q3

REPORT INFORMATION
  Report Type: 
  Country: None (occurrence: None)
  Receive Date: 20110909
  Receipt Date: 20110907
  Transmission Date: 20111222
  Serious: Yes (Other)
  Sender: FDA-Public Use
  Company Number: US-VERTEX PHARMACEUTICALS INC.-AE-2011-000801

PATIENT
  Sex: Male

DRUGS (8)
  1. RIBAVIRIN [Concomitant]
     Indication: HEPATITIS C
     Route: 048
     Dates: start: 20110627
  2. INCIVEK [Suspect]
     Indication: HEPATITIS C
     Route: 048
     Dates: start: 20110627
  3. PEGASYS [Concomitant]
     Indication: HEPATITIS C
     Route: 058
     Dates: start: 20110627
  4. CHLOROCOL [Concomitant]
     Route: 048
  5. TYLENOL-500 [Concomitant]
     Route: 048
  6. OMEPRAZOLE [Concomitant]
     Route: 048
  7. CENTRUM SILVER [Concomitant]
     Route: 048
  8. SYNTHROID [Concomitant]
     Route: 048

REACTIONS (10)
  - CONSTIPATION [None]
  - DECREASED APPETITE [None]
  - DIARRHOEA [None]
  - FAECALOMA [None]
  - ABDOMINAL PAIN [None]
  - RECTAL HAEMORRHAGE [None]
  - ABDOMINAL DISTENSION [None]
  - PROCTALGIA [None]
  - NAUSEA [None]
  - RASH PRURITIC [None]
